FAERS Safety Report 13863499 (Version 2)
Quarter: 2017Q3

REPORT INFORMATION
  Report Type: Spontaneous
  Country: US (occurrence: US)
  Receive Date: 20170814
  Receipt Date: 20170830
  Transmission Date: 20171127
  Serious: No
  Sender: FDA-Public Use
  Company Number: US-PFIZER INC-2017348519

PATIENT
  Age: 28 Year
  Sex: Female
  Weight: 108.3 kg

DRUGS (3)
  1. PAXIL [Concomitant]
     Active Substance: PAROXETINE HYDROCHLORIDE
     Indication: DEPRESSION
     Dosage: 1 DF, 1X/DAY (HER TABLETS ARE EITHER 5MG OR 10MG. DX ON AND OFF SINCE 2002)
     Route: 048
     Dates: start: 2013
  2. ZYRTEC [Concomitant]
     Active Substance: CETIRIZINE HYDROCHLORIDE
     Indication: FOOD ALLERGY
     Dosage: 10 MG, 1X/DAY
     Route: 048
  3. GABAPENTIN. [Suspect]
     Active Substance: GABAPENTIN
     Indication: FIBROMYALGIA
     Dosage: 1500 MG, DAILY (FIVE PILLS PER DAY AT NIGHT )
     Route: 048
     Dates: start: 2015, end: 201707

REACTIONS (5)
  - Fatigue [Unknown]
  - Product use in unapproved indication [Unknown]
  - Somnolence [Unknown]
  - Feeling abnormal [Recovered/Resolved]
  - Drug effect incomplete [Recovered/Resolved]

NARRATIVE: CASE EVENT DATE: 2015
